FAERS Safety Report 24557241 (Version 2)
Quarter: 2025Q3

REPORT INFORMATION
  Report Type: Report from Study
  Country: CA (occurrence: CA)
  Receive Date: 20241028
  Receipt Date: 20250916
  Transmission Date: 20251020
  Serious: Yes (Hospitalization, Other)
  Sender: PFIZER
  Company Number: CA-PFIZER INC-202400287713

PATIENT
  Age: 50 Year
  Sex: Female

DRUGS (6)
  1. RITUXIMAB [Suspect]
     Active Substance: RITUXIMAB
     Indication: Rheumatoid arthritis
     Route: 042
  2. RITUXIMAB [Suspect]
     Active Substance: RITUXIMAB
     Indication: Rheumatoid arthritis
     Route: 042
  3. ACRIVASTINE [Suspect]
     Active Substance: ACRIVASTINE
     Route: 065
  4. ACETAMINOPHEN [Concomitant]
     Active Substance: ACETAMINOPHEN
     Route: 048
  5. DIPHENHYDRAMINE [Concomitant]
     Active Substance: DIPHENHYDRAMINE
     Route: 048
  6. METHYLPREDNISOLONE [Concomitant]
     Active Substance: METHYLPREDNISOLONE
     Route: 042

REACTIONS (7)
  - Atrial fibrillation [Recovered/Resolved]
  - Atypical migraine [Recovered/Resolved]
  - Poor quality sleep [Recovered/Resolved]
  - Somnolence [Recovered/Resolved]
  - Pain [Recovered/Resolved]
  - Off label use [Unknown]
  - Inappropriate schedule of product administration [Unknown]
